FAERS Safety Report 8577459-1 (Version None)
Quarter: 2012Q3

REPORT INFORMATION
  Report Type: 
  Country: None (occurrence: None)
  Receive Date: 20120807
  Receipt Date: 20120727
  Transmission Date: 20120928
  Serious: Yes (Other)
  Sender: FDA-Public Use
  Company Number: CHPA2012DE016661

PATIENT
  Age: 74 Year
  Sex: Female

DRUGS (1)
  1. IBUPROFEN [Suspect]
     Indication: HEADACHE
     Dosage: 600 MG, UNK
     Route: 048

REACTIONS (2)
  - LEUKOPENIA [None]
  - GRANULOCYTOPENIA [None]
